FAERS Safety Report 16389124 (Version 6)
Quarter: 2021Q1

REPORT INFORMATION
  Report Type: Report from Study
  Country: DE (occurrence: DE)
  Receive Date: 20190604
  Receipt Date: 20210203
  Transmission Date: 20210419
  Serious: Yes (Life-Threatening)
  Sender: FDA-Public Use
  Company Number: DE-MYLANLABS-2019M1051942

PATIENT
  Age: 71 Year
  Sex: Female
  Weight: 86 kg

DRUGS (15)
  1. TRASTUZUMAB. [Suspect]
     Active Substance: TRASTUZUMAB
     Dosage: 520 MILLIGRAM, Q21D (MOST RECENT DOSE PRIOR TO SECOND EPISODE OF WHITE BLOOD CELL DECREASED)
     Route: 042
     Dates: start: 20170131
  2. TRASTUZUMAB. [Suspect]
     Active Substance: TRASTUZUMAB
     Dosage: 480 MILLIGRAM, Q21D (MOST RECENT DOSE PRIOR TO SECOND EPISODE OF WHITE BLOOD CELL DECREASED)
     Route: 042
     Dates: start: 20170131
  3. PERJETA [Suspect]
     Active Substance: PERTUZUMAB
     Dosage: 840 MILLIGRAM, Q21D
     Route: 042
     Dates: start: 20170131
  4. TAXOTERE [Suspect]
     Active Substance: DOCETAXEL
     Indication: HER2 POSITIVE BREAST CANCER
     Dosage: 150 MILLIGRAM, Q21D
     Route: 042
     Dates: start: 20170131
  5. DOCETAXEL. [Suspect]
     Active Substance: DOCETAXEL
     Indication: HER2 POSITIVE BREAST CANCER
     Dosage: 150 MILLIGRAM, Q21D (MOST RECENT DOSE PRIOR TO SECOND EPISODE OF WHITE BLOOD CELL DECREASED)
     Route: 042
     Dates: start: 20170131
  6. PERTUZUMAB. [Suspect]
     Active Substance: PERTUZUMAB
     Dosage: 840 MILLIGRAM, Q21D (MOST RECENT DOSE PRIOR TO SECOND EPISODE OF WHITE BLOOD CELL DECREASED)
     Route: 042
     Dates: start: 20170731
  7. RANITIDIN [Concomitant]
     Active Substance: RANITIDINE HYDROCHLORIDE
     Indication: PROPHYLAXIS
     Dosage: DAILY DOSE: 1 DF DOSAGE FORM EVERY 21 DAYS
     Route: 042
  8. TRASTUZUMAB. [Suspect]
     Active Substance: TRASTUZUMAB
     Dosage: 560 MILLIGRAM, Q21D  (MOST RECENT DOSE PRIOR TO SECOND EPISODE OF WHITE BLOOD CELL DECREASED)
     Route: 042
     Dates: start: 20170131
  9. PERJETA [Suspect]
     Active Substance: PERTUZUMAB
     Indication: HER2 POSITIVE BREAST CANCER
     Dosage: 420 MILLIGRAM, Q21D
     Route: 042
     Dates: start: 20170131
  10. PERJETA [Suspect]
     Active Substance: PERTUZUMAB
     Dosage: 520 MILLIGRAM, Q21D
  11. PERTUZUMAB. [Suspect]
     Active Substance: PERTUZUMAB
     Indication: HER2 POSITIVE BREAST CANCER
     Dosage: 520 MILLIGRAM, Q3W (MOST RECENT DOSE PRIOR TO SECOND EPISODE OF WHITE BLOOD CELL DECREASED)
     Route: 042
     Dates: start: 20170131
  12. TAVEGIL                            /00137201/ [Concomitant]
     Active Substance: CLEMASTINE FUMARATE
     Indication: PROPHYLAXIS
     Dosage: DAILY DOSE: 1 DF DOSAGE FORM EVERY 21 DAYS
     Route: 042
     Dates: start: 20170131
  13. DEXAMETHASON                       /00016001/ [Concomitant]
     Active Substance: DEXAMETHASONE
     Indication: PROPHYLAXIS
     Dosage: DAILY DOSE: 12 MG MILLGRAM(S) EVERY 21 DAYS
     Route: 042
     Dates: start: 20170131
  14. TRASTUZUMAB. [Suspect]
     Active Substance: TRASTUZUMAB
     Indication: HER2 POSITIVE BREAST CANCER
     Dosage: 505 MILLIGRAM, Q21D
     Route: 042
     Dates: start: 20170131
  15. TRASTUZUMAB. [Suspect]
     Active Substance: TRASTUZUMAB
     Dosage: 745 MILLIGRAM, Q21D
     Route: 042
     Dates: start: 20170131

REACTIONS (11)
  - Fatigue [Not Recovered/Not Resolved]
  - Chills [Recovered/Resolved]
  - Paraesthesia [Not Recovered/Not Resolved]
  - Peripheral sensory neuropathy [Not Recovered/Not Resolved]
  - Pain in extremity [Not Recovered/Not Resolved]
  - Alopecia [Not Recovered/Not Resolved]
  - Restless legs syndrome [Not Recovered/Not Resolved]
  - Pruritus [Not Recovered/Not Resolved]
  - Anaemia [Not Recovered/Not Resolved]
  - Diarrhoea [Recovered/Resolved]
  - White blood cell count decreased [Recovered/Resolved]

NARRATIVE: CASE EVENT DATE: 20170131
